FAERS Safety Report 7735208-0 (Version None)
Quarter: 2011Q3

REPORT INFORMATION
  Report Type: 
  Country: None (occurrence: None)
  Receive Date: 20110907
  Receipt Date: 20110830
  Transmission Date: 20111222
  Serious: Yes (Hospitalization, Other)
  Sender: FDA-Public Use
  Company Number: CHPA2011US11660

PATIENT
  Age: 56 Year
  Sex: Female
  Weight: 77.098 kg

DRUGS (1)
  1. TRANSDERM SCOP [Suspect]
     Indication: NAUSEA
     Dosage: UNK, UNK
     Route: 062

REACTIONS (5)
  - VOMITING [None]
  - THERMAL BURN [None]
  - DRUG DEPENDENCE [None]
  - BURNING SENSATION [None]
  - DISEASE RECURRENCE [None]
